FAERS Safety Report 6604548-0 (Version None)
Quarter: 2010Q1

REPORT INFORMATION
  Report Type: 
  Country: None (occurrence: None)
  Receive Date: 20100226
  Receipt Date: 20091119
  Transmission Date: 20100710
  Serious: No
  Sender: FDA-Public Use
  Company Number: A0818153A

PATIENT
  Age: 34 Year
  Sex: Female

DRUGS (6)
  1. LAMICTAL CD [Suspect]
     Indication: BIPOLAR DISORDER
     Dosage: 400MG PER DAY
     Route: 048
     Dates: start: 20091001
  2. TIAZAC [Concomitant]
  3. CELEXA [Concomitant]
  4. INVEGA [Concomitant]
  5. SINGULAIR [Concomitant]
  6. ADDERALL 30 [Concomitant]

REACTIONS (1)
  - AMNESIA [None]
